FAERS Safety Report 6407786-5 (Version None)
Quarter: 2009Q4

REPORT INFORMATION
  Report Type: 
  Country: None (occurrence: None)
  Receive Date: 20091020
  Receipt Date: 20091007
  Transmission Date: 20100525
  Serious: Yes (Death, Life-Threatening)
  Sender: FDA-Public Use
  Company Number: FR-GENENTECH-289172

PATIENT
  Sex: Male

DRUGS (3)
  1. MABTHERA [Suspect]
     Indication: LYMPHOMA
     Dosage: 375 MG/M2, UNK
     Route: 042
     Dates: start: 20071201, end: 20071201
  2. FLUDARA [Suspect]
     Indication: LYMPHOMA
     Dosage: 25 MG/M2, UNK
     Route: 042
     Dates: start: 20071201, end: 20071201
  3. ENDOXAN [Suspect]
     Indication: LYMPHOMA
     Dosage: 250 MG/M2, UNK
     Route: 042
     Dates: start: 20071201, end: 20071201

REACTIONS (1)
  - PROGRESSIVE MULTIFOCAL LEUKOENCEPHALOPATHY [None]
